FAERS Safety Report 24264755 (Version 1)
Quarter: 2024Q3

REPORT INFORMATION
  Report Type: Spontaneous
  Country: ID (occurrence: ID)
  Receive Date: 20240829
  Receipt Date: 20240829
  Transmission Date: 20241016
  Serious: Yes (Other)
  Sender: INCYTE
  Company Number: ID-002147023-NVSC2024ID171676

PATIENT

DRUGS (2)
  1. RUXOLITINIB [Suspect]
     Active Substance: RUXOLITINIB
     Indication: Product used for unknown indication
     Dosage: 10 MG, BID
     Route: 065
  2. RUXOLITINIB [Suspect]
     Active Substance: RUXOLITINIB
     Dosage: 15 MG, BID
     Route: 065

REACTIONS (5)
  - Cough [Unknown]
  - Pyrexia [Unknown]
  - Pulmonary tuberculosis [Unknown]
  - Weight decreased [Unknown]
  - Appetite disorder [Unknown]
